FAERS Safety Report 7716464-1 (Version None)
Quarter: 2011Q3

REPORT INFORMATION
  Report Type: 
  Country: None (occurrence: None)
  Receive Date: 20110829
  Receipt Date: 20110825
  Transmission Date: 20111222
  Serious: Yes (Death)
  Sender: FDA-Public Use
  Company Number: PHHY2011TW75956

PATIENT
  Age: 11 Year
  Sex: Male

DRUGS (5)
  1. PREDNISONE [Suspect]
     Indication: HODGKIN'S DISEASE
  2. MECHLORETHAMINE [Suspect]
     Indication: HODGKIN'S DISEASE
  3. RADIOTHERAPY [Concomitant]
     Indication: HODGKIN'S DISEASE
  4. ONCOVIN [Suspect]
     Indication: HODGKIN'S DISEASE
  5. PROCARBAZINE HYDROCHLORIDE [Suspect]
     Indication: HODGKIN'S DISEASE

REACTIONS (1)
  - PROTEUS INFECTION [None]
